FAERS Safety Report 5235986-9 (Version None)
Quarter: 2007Q1

REPORT INFORMATION
  Report Type: 
  Country: None (occurrence: None)
  Receive Date: 20061208
  Receipt Date: 20051219
  Transmission Date: 20070707
  Serious: Yes (Other)
  Sender: FDA-Public Use
  Company Number: 2005UW19108

PATIENT
  Sex: Male

DRUGS (5)
  1. TOPROL-XL [Suspect]
     Dates: start: 19990101
  2. CRESTOR [Suspect]
     Dosage: 10 MG QD PO
     Route: 048
     Dates: start: 20040101, end: 20051201
  3. ALTACE [Concomitant]
  4. ZOCOR [Concomitant]
  5. ASPIRIN [Concomitant]

REACTIONS (2)
  - ASTHENIA [None]
  - FATIGUE [None]
